FAERS Safety Report 6586340-9 (Version None)
Quarter: 2010Q1

REPORT INFORMATION
  Report Type: 
  Country: None (occurrence: None)
  Receive Date: 20100216
  Receipt Date: 20100216
  Transmission Date: 20100710
  Serious: Yes (Other)
  Sender: FDA-Public Use
  Company Number: None

PATIENT
  Age: 34 Year
  Sex: Male
  Weight: 89.8122 kg

DRUGS (1)
  1. AVELOX [Suspect]
     Dosage: 400MG ONCE DAILY PO
     Route: 048
     Dates: start: 20100126, end: 20100201

REACTIONS (1)
  - TENDON PAIN [None]
